FAERS Safety Report 7894129-3 (Version None)
Quarter: 2011Q4

REPORT INFORMATION
  Report Type: 
  Country: None (occurrence: None)
  Receive Date: 20111104
  Receipt Date: 20111026
  Transmission Date: 20120403
  Serious: Yes (Hospitalization, Other)
  Sender: FDA-Public Use
  Company Number: MX-SANOFI-AVENTIS-2011SA070806

PATIENT
  Age: 57 Year
  Sex: Male
  Weight: 84 kg

DRUGS (6)
  1. ASPIRIN [Concomitant]
     Route: 048
  2. ATORVASTATIN [Concomitant]
     Dosage: DOSE:1 UNIT(S)
     Route: 048
     Dates: start: 20101001
  3. OMEPRAZOLE [Concomitant]
     Route: 048
     Dates: start: 20110701
  4. METOPROLOL TARTRATE [Concomitant]
     Route: 048
  5. PLAVIX [Suspect]
     Indication: THROMBOSIS PROPHYLAXIS
     Route: 048
     Dates: start: 20101001
  6. TENORMIN [Concomitant]
     Dosage: DOSE:1 UNIT(S)
     Route: 048
     Dates: start: 20101001

REACTIONS (3)
  - RETINAL DETACHMENT [None]
  - WEIGHT INCREASED [None]
  - ABDOMINAL PAIN UPPER [None]
